FAERS Safety Report 4735640-3 (Version None)
Quarter: 2005Q3

REPORT INFORMATION
  Report Type: 
  Country: None (occurrence: None)
  Receive Date: 20050805
  Receipt Date: 20050718
  Transmission Date: 20060218
  Serious: Yes (Other)
  Sender: FDA-Public Use
  Company Number: LB-GLAXOSMITHKLINE-B0388434A

PATIENT

DRUGS (2)
  1. VINORELBINE [Suspect]
     Dosage: 25MGM2 CYCLIC
     Route: 065
  2. CAPECITABINE [Suspect]
     Dosage: 825MGM2 CYCLIC
     Route: 065

REACTIONS (1)
  - PALMAR-PLANTAR ERYTHRODYSAESTHESIA SYNDROME [None]
